FAERS Safety Report 26128799 (Version 1)
Quarter: 2025Q4

REPORT INFORMATION
  Report Type: Report from Study
  Country: US (occurrence: US)
  Receive Date: 20251208
  Receipt Date: 20251208
  Transmission Date: 20260117
  Serious: No
  Sender: DECIPHERA PHARMACEUTICALS
  Company Number: US-DECIPHERA PHARMACEUTICALS LLC-2025US001483

PATIENT
  Age: 48 Year
  Sex: Female

DRUGS (1)
  1. ROMVIMZA [Suspect]
     Active Substance: VIMSELTINIB
     Indication: Synovitis
     Dosage: 30 MILLIGRAM, TWICE WEEKLY, 72 HOURS
     Dates: start: 20250326, end: 2025

REACTIONS (1)
  - Adverse drug reaction [Unknown]

NARRATIVE: CASE EVENT DATE: 20250101
